FAERS Safety Report 11914220 (Version 2)
Quarter: 2016Q1

REPORT INFORMATION
  Report Type: Spontaneous
  Country: US (occurrence: US)
  Receive Date: 20160113
  Receipt Date: 20160317
  Transmission Date: 20160526
  Serious: Yes (Other)
  Sender: FDA-Public Use
  Company Number: US-SHIRE-US201600107

PATIENT
  Age: 50 Year
  Sex: Male

DRUGS (1)
  1. VYVANSE [Suspect]
     Active Substance: LISDEXAMFETAMINE DIMESYLATE
     Indication: PRODUCT USED FOR UNKNOWN INDICATION
     Dosage: 50 MG, OTHER (PER DAY)
     Route: 048

REACTIONS (2)
  - End stage renal disease [Not Recovered/Not Resolved]
  - Prescribed overdose [Not Recovered/Not Resolved]
